FAERS Safety Report 5746618-5 (Version None)
Quarter: 2008Q2

REPORT INFORMATION
  Report Type: 
  Country: None (occurrence: None)
  Receive Date: 20080522
  Receipt Date: 20080519
  Transmission Date: 20081010
  Serious: Yes (Hospitalization)
  Sender: FDA-Public Use
  Company Number: US-JNJFOC-20060905595

PATIENT
  Sex: Female
  Weight: 61.46 kg

DRUGS (3)
  1. ORTHO EVRA [Suspect]
     Indication: ACNE CYSTIC
     Route: 062
  2. ORTHO EVRA [Suspect]
     Indication: CONTRACEPTION
     Route: 062
  3. IBUPROFEN [Concomitant]
     Indication: DRUG USE FOR UNKNOWN INDICATION
     Dates: start: 20050909

REACTIONS (21)
  - ABDOMINAL PAIN [None]
  - BLOOD CALCIUM DECREASED [None]
  - BLOOD IMMUNOGLOBULIN M INCREASED [None]
  - BLOOD POTASSIUM DECREASED [None]
  - COUGH [None]
  - CYTOMEGALOVIRUS ANTIBODY POSITIVE [None]
  - DEEP VEIN THROMBOSIS [None]
  - DYSPNOEA [None]
  - EXCORIATION [None]
  - HAEMATOCRIT DECREASED [None]
  - HAEMOGLOBIN DECREASED [None]
  - HYPOAESTHESIA [None]
  - JOINT INJURY [None]
  - JOINT SPRAIN [None]
  - LYMPHADENOPATHY [None]
  - PERIPHERAL COLDNESS [None]
  - PLEURITIC PAIN [None]
  - TYPE 2 DIABETES MELLITUS [None]
  - UTERINE INFECTION [None]
  - VAGINAL HAEMORRHAGE [None]
  - WOUND [None]
